FAERS Safety Report 8953503 (Version 1)
Quarter: 2012Q4

REPORT INFORMATION
  Report Type: 
  Country: IT (occurrence: IT)
  Receive Date: 20121206
  Receipt Date: 20121206
  Transmission Date: 20130627
  Serious: Yes (Hospitalization)
  Sender: FDA-Public Use
  Company Number: IT-GLAXOSMITHKLINE-B0850053A

PATIENT
  Age: 49 Year
  Sex: Female

DRUGS (4)
  1. LAMICTAL [Suspect]
     Indication: INTENTIONAL OVERDOSE
     Dates: start: 20121125, end: 20121125
  2. LORAZEPAM [Suspect]
     Indication: INTENTIONAL OVERDOSE
     Dosage: 150MG per day
     Dates: start: 20121125, end: 20121125
  3. SUPRADYN [Concomitant]
  4. EN [Concomitant]

REACTIONS (6)
  - Hypotension [Recovering/Resolving]
  - Fall [Recovering/Resolving]
  - Loss of consciousness [Recovering/Resolving]
  - Periorbital haemorrhage [Recovering/Resolving]
  - Eyelid oedema [Recovering/Resolving]
  - Intentional overdose [Recovering/Resolving]
